FAERS Safety Report 23993544 (Version 3)
Quarter: 2025Q3

REPORT INFORMATION
  Report Type: Spontaneous
  Country: AU (occurrence: AU)
  Receive Date: 20240620
  Receipt Date: 20250722
  Transmission Date: 20251020
  Serious: Yes (Congenital Anomaly, Other)
  Sender: CIPLA
  Company Number: AU-CIPLA LTD.-2024AU06088

PATIENT

DRUGS (9)
  1. LAMOTRIGINE [Suspect]
     Active Substance: LAMOTRIGINE
     Route: 064
  2. LEVETIRACETAM [Suspect]
     Active Substance: LEVETIRACETAM
     Route: 064
  3. LACOSAMIDE [Suspect]
     Active Substance: LACOSAMIDE
     Route: 064
  4. CLOBAZAM [Suspect]
     Active Substance: CLOBAZAM
     Route: 064
  5. CLOBAZAM [Suspect]
     Active Substance: CLOBAZAM
     Route: 064
  6. PHENOBARBITAL [Suspect]
     Active Substance: PHENOBARBITAL
     Route: 064
  7. PHENOBARBITAL [Suspect]
     Active Substance: PHENOBARBITAL
     Route: 064
  8. PHENYTOIN [Suspect]
     Active Substance: PHENYTOIN
     Route: 064
  9. ZONISAMIDE [Suspect]
     Active Substance: ZONISAMIDE
     Route: 064

REACTIONS (5)
  - Foetal malformation [Unknown]
  - Cleft palate [Unknown]
  - Congenital aplasia [Unknown]
  - Spina bifida [Unknown]
  - Foetal exposure during pregnancy [Unknown]
